FAERS Safety Report 4559193-8 (Version None)
Quarter: 2005Q1

REPORT INFORMATION
  Report Type: 
  Country: None (occurrence: None)
  Receive Date: 20050121
  Receipt Date: 20050121
  Transmission Date: 20050727
  Serious: Yes (Other)
  Sender: FDA-Public Use
  Company Number: None

PATIENT
  Sex: Male
  Weight: 162.84 kg

DRUGS (1)
  1. TRILEPTAL [Suspect]
     Dosage: 1800 MG   QD  ORAL
     Route: 048

REACTIONS (1)
  - HYPONATRAEMIA [None]
